FAERS Safety Report 4556551-2 (Version None)
Quarter: 2005Q1

REPORT INFORMATION
  Report Type: 
  Country: None (occurrence: None)
  Receive Date: 20050114
  Receipt Date: 20050105
  Transmission Date: 20050727
  Serious: Yes (Life-Threatening, Other)
  Sender: FDA-Public Use
  Company Number: SP-2005-001989

PATIENT
  Sex: Female
  Weight: 70 kg

DRUGS (4)
  1. OLMETEC [Suspect]
     Indication: CARDIAC FAILURE CONGESTIVE
     Dosage: 10 MG QD PO
     Route: 048
     Dates: start: 20040406, end: 20041112
  2. ALBUTEROL [Concomitant]
  3. BECLOMETHASONE [Concomitant]
  4. ACETAMINOPHEN [Concomitant]

REACTIONS (2)
  - ASTHENIA [None]
  - HYPONATRAEMIA [None]
